FAERS Safety Report 10352790 (Version 1)
Quarter: 2014Q3

REPORT INFORMATION
  Report Type: Spontaneous
  Country: US (occurrence: US)
  Receive Date: 20140730
  Receipt Date: 20140730
  Transmission Date: 20150326
  Serious: No
  Sender: FDA-Public Use
  Company Number: US-ABBVIE-14P-163-1185331-00

PATIENT
  Age: 48 Year
  Sex: Female
  Weight: 57.66 kg

DRUGS (2)
  1. SYNTHROID [Suspect]
     Active Substance: LEVOTHYROXINE SODIUM
     Indication: HYPOTHYROIDISM
     Route: 048
     Dates: start: 201308, end: 201310
  2. MULTIVITAMIN [Concomitant]
     Active Substance: VITAMINS

REACTIONS (3)
  - Alopecia [Recovering/Resolving]
  - Anxiety [Recovered/Resolved]
  - Poor quality sleep [Recovered/Resolved]

NARRATIVE: CASE EVENT DATE: 201308
